FAERS Safety Report 4613245-2 (Version None)
Quarter: 2005Q1

REPORT INFORMATION
  Report Type: 
  Country: None (occurrence: None)
  Receive Date: 20050315
  Receipt Date: 20050307
  Transmission Date: 20050727
  Serious: Yes (Life-Threatening)
  Sender: FDA-Public Use
  Company Number: 212905

PATIENT
  Age: 80 Year
  Sex: Female
  Weight: 65 kg

DRUGS (6)
  1. ACTIVASE [Suspect]
     Indication: CEREBROVASCULAR ACCIDENT
     Dosage: 45 MG, SINGLE, INTRAVENOUS; SEE IMAGE
     Route: 042
     Dates: start: 20041013, end: 20041013
  2. ACTIVASE [Suspect]
     Indication: CEREBROVASCULAR ACCIDENT
     Dosage: 45 MG, SINGLE, INTRAVENOUS; SEE IMAGE
     Route: 042
     Dates: start: 20041013
  3. ASPIRIN [Concomitant]
  4. SELOKEEN ZOC (METOPROLOL SUCCINATE) [Concomitant]
  5. RAMIPRIL [Concomitant]
  6. ZOCORD (SIMVASTATIN) [Concomitant]

REACTIONS (2)
  - ASPIRATION [None]
  - PULMONARY OEDEMA [None]
